FAERS Safety Report 8595824-3 (Version None)
Quarter: 2012Q3

REPORT INFORMATION
  Report Type: 
  Country: None (occurrence: None)
  Receive Date: 20120815
  Receipt Date: 19881019
  Transmission Date: 20120928
  Serious: Yes (Other)
  Sender: FDA-Public Use
  Company Number: US-ROCHE-1097100

PATIENT
  Age: 56 Year
  Sex: Female

DRUGS (3)
  1. LIDOCAINE [Concomitant]
  2. ACTIVASE [Suspect]
     Indication: MYOCARDIAL INFARCTION
     Route: 040
  3. ACTIVASE [Suspect]
     Dosage: 100 MG PER MINUTE FOR ADDITIONAL 50 MG
     Route: 041

REACTIONS (2)
  - BLOOD PRESSURE FLUCTUATION [None]
  - HEADACHE [None]
